APPROVED DRUG PRODUCT: FLUPHENAZINE DECANOATE
Active Ingredient: FLUPHENAZINE DECANOATE
Strength: 25MG/ML
Dosage Form/Route: INJECTABLE;INJECTION
Application: A215365 | Product #001 | TE Code: AO
Applicant: MSN LABORATORIES PRIVATE LTD
Approved: Nov 2, 2023 | RLD: No | RS: No | Type: RX